FAERS Safety Report 15306913 (Version 1)
Quarter: 2018Q3

REPORT INFORMATION
  Report Type: Spontaneous
  Country: AU (occurrence: AU)
  Receive Date: 20180822
  Receipt Date: 20180822
  Transmission Date: 20181010
  Serious: Yes (Hospitalization)
  Sender: FDA-Public Use
  Company Number: AU-MYLANLABS-2018M1062741

PATIENT
  Age: 31 Year
  Sex: Male

DRUGS (4)
  1. CODEINE [Suspect]
     Active Substance: CODEINE
     Dosage: 576 MG, QD
     Route: 048
  2. CODEINE [Suspect]
     Active Substance: CODEINE
     Indication: ANALGESIC THERAPY
     Dosage: APPROXIMATELY
     Route: 048
  3. IBUPROFEN. [Suspect]
     Active Substance: IBUPROFEN
     Indication: ANALGESIC THERAPY
     Dosage: APPROXIMATELY
     Route: 048
  4. IBUPROFEN. [Suspect]
     Active Substance: IBUPROFEN
     Dosage: 9 G, QD
     Route: 048

REACTIONS (4)
  - Overdose [Recovered/Resolved]
  - Renal failure [Recovered/Resolved]
  - Drug abuse [Recovered/Resolved]
  - Nephropathy toxic [Recovered/Resolved]
